FAERS Safety Report 19800777 (Version 1)
Quarter: 2021Q3

REPORT INFORMATION
  Report Type: Spontaneous
  Country: US (occurrence: US)
  Receive Date: 20210908
  Receipt Date: 20210908
  Transmission Date: 20211014
  Serious: No
  Sender: FDA-Public Use
  Company Number: NVSC2021US203068

PATIENT
  Sex: Female

DRUGS (4)
  1. CYCLOSPORINE. [Suspect]
     Active Substance: CYCLOSPORINE
     Indication: CENTRAL NERVOUS SYSTEM FUNCTION TEST ABNORMAL
  2. PROMACTA [Suspect]
     Active Substance: ELTROMBOPAG OLAMINE
     Indication: CENTRAL NERVOUS SYSTEM FUNCTION TEST ABNORMAL
  3. CYCLOSPORINE. [Suspect]
     Active Substance: CYCLOSPORINE
     Indication: APLASTIC ANAEMIA
     Dosage: 150 MG, QD
     Route: 048
  4. PROMACTA [Suspect]
     Active Substance: ELTROMBOPAG OLAMINE
     Indication: APLASTIC ANAEMIA
     Dosage: 150 MG, QD
     Route: 048

REACTIONS (4)
  - Abdominal pain [Unknown]
  - Toxicity to various agents [Unknown]
  - Vomiting [Unknown]
  - Nausea [Unknown]
